FAERS Safety Report 20040159 (Version 4)
Quarter: 2022Q1

REPORT INFORMATION
  Report Type: Report from Study
  Country: MY (occurrence: MY)
  Receive Date: 20211106
  Receipt Date: 20220113
  Transmission Date: 20220423
  Serious: Yes (Life-Threatening, Hospitalization, Other)
  Sender: FDA-Public Use
  Company Number: MY-NOVARTISPH-NVSC2021MY247709

PATIENT
  Age: 1 Year
  Sex: Male
  Weight: 8 kg

DRUGS (10)
  1. ZOLGENSMA [Suspect]
     Active Substance: ONASEMNOGENE ABEPARVOVEC-XIOI
     Indication: Spinal muscular atrophy
     Dosage: 1.1X 10^14 VG/KG (38.7 ML)
     Route: 042
     Dates: start: 20211021, end: 20211021
  2. VITAMINS [Concomitant]
     Active Substance: VITAMINS
     Indication: Supplementation therapy
     Dosage: 1 ML
     Route: 065
     Dates: start: 20211020, end: 20220103
  3. FOLIC ACID [Concomitant]
     Active Substance: FOLIC ACID
     Indication: Supplementation therapy
     Dosage: 1 MG
     Route: 065
     Dates: start: 20211020, end: 20220103
  4. PREDNISOLONE [Concomitant]
     Active Substance: PREDNISOLONE
     Indication: Product used for unknown indication
     Dosage: 1 MG/KG
     Route: 065
     Dates: start: 20211020
  5. PREDNISOLONE [Concomitant]
     Active Substance: PREDNISOLONE
     Dosage: 2 MG/KG, QD
     Route: 065
  6. PREDNISOLONE [Concomitant]
     Active Substance: PREDNISOLONE
     Dosage: 7 MG, QD
     Route: 065
     Dates: start: 20211020, end: 20211026
  7. PREDNISOLONE [Concomitant]
     Active Substance: PREDNISOLONE
     Dosage: 13 MG (DOSE INCREASED TO 2 MG/KG/DAY FOR 4 DAYS
     Route: 065
     Dates: start: 20211027, end: 20211030
  8. PREDNISOLONE [Concomitant]
     Active Substance: PREDNISOLONE
     Dosage: 7 MG, QD
     Route: 065
     Dates: start: 20211031
  9. PREDNISOLONE [Concomitant]
     Active Substance: PREDNISOLONE
     Dosage: 2.5 MG (EOD)
     Route: 065
     Dates: start: 20211231, end: 20220103
  10. OMEPRAZOLE [Concomitant]
     Active Substance: OMEPRAZOLE
     Indication: Product used for unknown indication
     Dosage: 6 MG, BID
     Route: 065
     Dates: start: 20211020, end: 20220103

REACTIONS (11)
  - Pneumonia [Not Recovered/Not Resolved]
  - Increased bronchial secretion [Not Recovered/Not Resolved]
  - Respiratory distress [Not Recovered/Not Resolved]
  - Respiratory failure [Not Recovered/Not Resolved]
  - Rash maculo-papular [Recovered/Resolved]
  - Thrombocytopenia [Recovered/Resolved]
  - Alanine aminotransferase increased [Recovered/Resolved]
  - Vomiting [Recovered/Resolved]
  - Pyrexia [Recovered/Resolved]
  - Bacterial infection [Recovered/Resolved]
  - Respiratory acidosis [Unknown]

NARRATIVE: CASE EVENT DATE: 20211025
